FAERS Safety Report 24432967 (Version 3)
Quarter: 2024Q4

REPORT INFORMATION
  Report Type: Spontaneous
  Country: US (occurrence: US)
  Receive Date: 20241014
  Receipt Date: 20241114
  Transmission Date: 20250115
  Serious: No
  Sender: JOHNSON AND JOHNSON
  Company Number: US-JNJFOC-20240975910

PATIENT
  Age: 52 Year
  Sex: Female

DRUGS (2)
  1. TREMFYA [Suspect]
     Active Substance: GUSELKUMAB
     Indication: Psoriatic arthropathy
     Route: 058
  2. TREMFYA [Suspect]
     Active Substance: GUSELKUMAB
     Indication: Psoriasis

REACTIONS (4)
  - Device deployment issue [Unknown]
  - Product dose omission issue [Unknown]
  - Swelling [Unknown]
  - Application site erythema [Unknown]

NARRATIVE: CASE EVENT DATE: 20240927
